FAERS Safety Report 10611112 (Version 1)
Quarter: 2014Q4

REPORT INFORMATION
  Report Type: Spontaneous
  Country: US (occurrence: US)
  Receive Date: 20141126
  Receipt Date: 20141126
  Transmission Date: 20150529
  Serious: No
  Sender: FDA-Public Use
  Company Number: US-GLAXOSMITHKLINE-A1088328A

PATIENT

DRUGS (2)
  1. ANTIBIOTIC [Concomitant]
     Active Substance: UNSPECIFIED INGREDIENT
  2. FLOVENT [Suspect]
     Active Substance: FLUTICASONE PROPIONATE
     Indication: ASTHMA
     Dosage: 220 MCG. UNKNOWN DOSING.
     Route: 065
     Dates: start: 2004

REACTIONS (8)
  - Asthma [Unknown]
  - Malaise [Unknown]
  - Fall [Unknown]
  - Skin abrasion [Unknown]
  - Hypersensitivity [Unknown]
  - Sinusitis [Unknown]
  - Laceration [Unknown]
  - Weight increased [Unknown]
